FAERS Safety Report 6575282-0 (Version None)
Quarter: 2010Q1

REPORT INFORMATION
  Report Type: 
  Country: None (occurrence: None)
  Receive Date: 20100209
  Receipt Date: 20100125
  Transmission Date: 20100710
  Serious: Yes (Hospitalization)
  Sender: FDA-Public Use
  Company Number: BR-ROCHE-676615

PATIENT
  Sex: Male

DRUGS (7)
  1. MYCOPHENOLATE MOFETIL [Suspect]
     Indication: RENAL TRANSPLANT
     Route: 065
     Dates: start: 20051112, end: 20091203
  2. BELATACEPT [Suspect]
     Indication: RENAL TRANSPLANT
     Route: 042
     Dates: start: 20051111, end: 20091201
  3. PREDNISONE [Suspect]
     Indication: RENAL TRANSPLANT
     Dosage: FREQUENCY: 1 DAY.
     Route: 048
     Dates: start: 20051113, end: 20091215
  4. PREDNISONE [Suspect]
     Dosage: DOSE WAS INCREASED.
     Route: 048
  5. BASILIXIMAB [Concomitant]
     Dates: start: 20051111, end: 20051115
  6. METHYLPREDNISOLONE [Concomitant]
     Dates: start: 20051111, end: 20051112
  7. VALACYCLOVIR [Concomitant]
     Dates: start: 20051123, end: 20060224

REACTIONS (3)
  - BRONCHOPNEUMONIA [None]
  - EPSTEIN-BARR VIRUS ASSOCIATED LYMPHOPROLIFERATIVE DISORDER [None]
  - PNEUMOTHORAX [None]
